FAERS Safety Report 19857283 (Version 1)
Quarter: 2021Q3

REPORT INFORMATION
  Report Type: Spontaneous
  Country: US (occurrence: US)
  Receive Date: 20210921
  Receipt Date: 20210921
  Transmission Date: 20211014
  Serious: Yes (Other)
  Sender: FDA-Public Use
  Company Number: US-AMGEN-USASP2021142346

PATIENT
  Age: 75 Year
  Sex: Male

DRUGS (1)
  1. EPOGEN [Suspect]
     Active Substance: ERYTHROPOIETIN
     Indication: RENAL FAILURE
     Dosage: UNK
     Route: 065

REACTIONS (2)
  - Vascular occlusion [Unknown]
  - Therapeutic procedure [Unknown]
